FAERS Safety Report 9763569 (Version 2)
Quarter: 2013Q4

REPORT INFORMATION
  Report Type: Spontaneous
  Country: US (occurrence: US)
  Receive Date: 20131216
  Receipt Date: 20131216
  Transmission Date: 20140711
  Serious: Yes (Other)
  Sender: FDA-Public Use
  Company Number: PHEH2013US023580

PATIENT
  Sex: Female

DRUGS (4)
  1. RECLAST [Suspect]
     Indication: OSTEOPOROSIS
     Dosage: UNK
     Route: 042
  2. RECLAST [Suspect]
     Dosage: UNK
     Route: 042
  3. RECLAST [Suspect]
     Dosage: UNK
     Route: 042
  4. RECLAST [Suspect]
     Dosage: UNK
     Route: 042

REACTIONS (5)
  - Neuropathy peripheral [Unknown]
  - Bone disorder [Recovered/Resolved]
  - Arthralgia [Unknown]
  - Musculoskeletal stiffness [Unknown]
  - Pain in extremity [Unknown]
